FAERS Safety Report 9442438 (Version 2)
Quarter: 2013Q3

REPORT INFORMATION
  Report Type: Report from Study
  Country: PL (occurrence: PL)
  Receive Date: 20130806
  Receipt Date: 20130920
  Transmission Date: 20140515
  Serious: Yes (Hospitalization)
  Sender: FDA-Public Use
  Company Number: PL-ASTRAZENECA-2013SE00014

PATIENT
  Age: 23833 Day
  Sex: Male

DRUGS (15)
  1. AZD6140 [Suspect]
     Indication: CORONARY ARTERY DISEASE
     Route: 048
     Dates: start: 20110629, end: 20121221
  2. AZD6140 [Suspect]
     Indication: ARTERIAL STENT INSERTION
     Route: 048
     Dates: start: 20110629, end: 20121221
  3. AZD6140 [Suspect]
     Indication: CORONARY ARTERY DISEASE
     Dosage: MODIFIED STUDY TREATMENT IN COMBINATION WITH CLOPIDOGREL/PLACEBO
     Route: 048
     Dates: start: 20130624
  4. AZD6140 [Suspect]
     Indication: ARTERIAL STENT INSERTION
     Dosage: MODIFIED STUDY TREATMENT IN COMBINATION WITH CLOPIDOGREL/PLACEBO
     Route: 048
     Dates: start: 20130624
  5. POLOCARD [Suspect]
     Route: 048
  6. NOVO MIX 30 [Concomitant]
     Indication: TYPE 2 DIABETES MELLITUS
     Route: 058
  7. SIOFOR [Concomitant]
     Indication: TYPE 2 DIABETES MELLITUS
     Route: 048
  8. ATORIS [Concomitant]
     Indication: HYPERCHOLESTEROLAEMIA
     Route: 048
  9. COZAAR [Concomitant]
     Indication: DIABETIC VASCULAR DISORDER
     Route: 048
     Dates: start: 20120323
  10. AMLOZEK [Concomitant]
     Indication: HYPERTENSION
     Route: 048
  11. HYPLAFIN [Concomitant]
     Indication: BENIGN PROSTATIC HYPERPLASIA
     Route: 048
  12. NOVO MIX 50 [Concomitant]
     Indication: TYPE 2 DIABETES MELLITUS
     Route: 058
  13. CONTROLOC [Concomitant]
     Indication: ANTIPLATELET THERAPY
     Route: 048
  14. CORONAL [Concomitant]
     Indication: CORONARY ARTERY DISEASE
     Route: 048
  15. AREPLEX [Concomitant]
     Indication: ACUTE MYOCARDIAL INFARCTION
     Route: 048
     Dates: start: 20121221, end: 20130623

REACTIONS (1)
  - Gastric ulcer [Not Recovered/Not Resolved]
